FAERS Safety Report 7015334-4 (Version None)
Quarter: 2010Q3

REPORT INFORMATION
  Report Type: 
  Country: None (occurrence: None)
  Receive Date: 20100924
  Receipt Date: 20100924
  Transmission Date: 20110219
  Serious: No
  Sender: FDA-Public Use
  Company Number: None

PATIENT
  Age: 51 Year
  Sex: Female
  Weight: 63.5036 kg

DRUGS (1)
  1. COUMADIN [Suspect]
     Indication: PULMONARY EMBOLISM
     Dosage: 10MG MON. + FRI. PO;  7.5MG TUES-THUR/ SAT-SUN PO
     Route: 048
     Dates: start: 20100715, end: 20100909

REACTIONS (6)
  - EOSINOPHIL COUNT INCREASED [None]
  - GASTROOESOPHAGEAL REFLUX DISEASE [None]
  - HERPES SIMPLEX [None]
  - LYMPHADENOPATHY [None]
  - SALIVARY GLAND ENLARGEMENT [None]
  - STOMATITIS [None]
